FAERS Safety Report 9307004 (Version 1)
Quarter: 2013Q2

REPORT INFORMATION
  Report Type: Spontaneous
  Country: US (occurrence: US)
  Receive Date: 20130523
  Receipt Date: 20130523
  Transmission Date: 20140414
  Serious: Yes (Other)
  Sender: FDA-Public Use
  Company Number: US-009507513-1305USA010725

PATIENT
  Age: 19 Year
  Sex: Female
  Weight: 55.24 kg

DRUGS (2)
  1. NEXPLANON [Suspect]
     Indication: CONTRACEPTION
     Dosage: UNK
     Route: 059
     Dates: start: 20130418, end: 20130514
  2. AMOXICILLIN [Concomitant]

REACTIONS (3)
  - Implant site infection [Recovered/Resolved]
  - Product quality issue [Unknown]
  - Medical device complication [Unknown]
